FAERS Safety Report 13775739 (Version 1)
Quarter: 2017Q3

REPORT INFORMATION
  Report Type: Spontaneous
  Country: US (occurrence: US)
  Receive Date: 20170720
  Receipt Date: 20170720
  Transmission Date: 20171127
  Serious: No
  Sender: FDA-Public Use
  Company Number: US-009507513-1707USA006564

PATIENT
  Age: 32 Year
  Sex: Female

DRUGS (1)
  1. GANIRELIX ACETATE INJECTION [Suspect]
     Active Substance: GANIRELIX ACETATE
     Indication: INFERTILITY
     Dosage: 250 MICROGRAM, ONCE DAILY, (STRENGTH 250 MICROGRAM/0.5 ML)
     Route: 058
     Dates: start: 20170701, end: 20170705

REACTIONS (4)
  - Skin burning sensation [Unknown]
  - Injection site pain [Recovered/Resolved]
  - Arthralgia [Unknown]
  - Myalgia [Unknown]

NARRATIVE: CASE EVENT DATE: 201707
